FAERS Safety Report 7551906-6 (Version None)
Quarter: 2011Q2

REPORT INFORMATION
  Report Type: 
  Country: None (occurrence: None)
  Receive Date: 20110616
  Receipt Date: 20110531
  Transmission Date: 20111010
  Serious: Yes (Hospitalization, Other)
  Sender: FDA-Public Use
  Company Number: US-BAYER-2011-013961

PATIENT
  Age: 20 Year
  Sex: Female

DRUGS (9)
  1. DROSPIRENONE AND ETHINYL ESTRADIOL [Suspect]
     Indication: CONTRACEPTION
     Dosage: UNK
     Route: 048
     Dates: start: 20080821, end: 20091103
  2. DROSPIRENONE AND ETHINYL ESTRADIOL [Suspect]
     Indication: ACNE
  3. MOTRIN [Concomitant]
     Route: 048
  4. ANTIBIOTICS [Concomitant]
     Route: 048
  5. BACTRIM [Concomitant]
     Indication: ACNE
     Dosage: 400MG/80MG
     Route: 048
     Dates: start: 20060101
  6. TAZORAC [Concomitant]
     Indication: ACNE
     Dosage: UNK
     Route: 061
     Dates: start: 20030101
  7. PLEXION [Concomitant]
     Indication: ACNE
     Dosage: UNK
     Route: 061
     Dates: start: 20030101
  8. YASMIN [Suspect]
     Indication: ACNE
  9. YASMIN [Suspect]
     Indication: CONTRACEPTION
     Dosage: UNK
     Route: 048
     Dates: start: 20070320, end: 20080801

REACTIONS (1)
  - PULMONARY EMBOLISM [None]
